FAERS Safety Report 17111124 (Version 1)
Quarter: 2019Q4

REPORT INFORMATION
  Report Type: Spontaneous
  Country: IT (occurrence: IT)
  Receive Date: 20191204
  Receipt Date: 20191204
  Transmission Date: 20200122
  Serious: Yes (Other)
  Sender: FDA-Public Use
  Company Number: IT-MYLANLABS-2019M1118073

PATIENT
  Age: 30 Year
  Sex: Male

DRUGS (1)
  1. FEVARIN [Suspect]
     Active Substance: FLUVOXAMINE MALEATE
     Indication: MAJOR DEPRESSION
     Dosage: 100 MILLIGRAM, QD
     Route: 048

REACTIONS (1)
  - Hyperprolactinaemia [Recovered/Resolved]

NARRATIVE: CASE EVENT DATE: 20190715
